FAERS Safety Report 7674122-6 (Version None)
Quarter: 2011Q3

REPORT INFORMATION
  Report Type: 
  Country: None (occurrence: None)
  Receive Date: 20110810
  Receipt Date: 20110804
  Transmission Date: 20111222
  Serious: Yes (Hospitalization, Other)
  Sender: FDA-Public Use
  Company Number: FR-BAYER-2011-005342

PATIENT
  Age: 16 Year
  Sex: Female

DRUGS (1)
  1. JASMINE [Suspect]
     Indication: ORAL CONTRACEPTION
     Dosage: 1 DF, QD
     Route: 048
     Dates: start: 20100701, end: 20100913

REACTIONS (4)
  - CHOREA [None]
  - DYSARTHRIA [None]
  - COGNITIVE DISORDER [None]
  - SOCIAL AVOIDANT BEHAVIOUR [None]
